FAERS Safety Report 6978504 (Version 41)
Quarter: 2014Q1

REPORT INFORMATION
  Report Type: Spontaneous
  Country: US (occurrence: US)
  Receive Date: 20090427
  Receipt Date: 20140213
  Transmission Date: 20141002
  Serious: Yes (Hospitalization, Other)
  Sender: FDA-Public Use
  Company Number: PHEH2009US03937

PATIENT
  Sex: Female

DRUGS (81)
  1. ZOMETA [Suspect]
     Indication: METASTASES TO BONE
     Dosage: 4 MG, QMO
     Route: 042
     Dates: start: 200610, end: 200710
  2. ZOMETA [Suspect]
     Indication: BREAST CANCER METASTATIC
     Route: 042
     Dates: start: 200803, end: 200810
  3. ZOMETA [Suspect]
     Indication: METASTATIC NEOPLASM
  4. FOSAMAX [Suspect]
  5. FENTANYL [Concomitant]
     Dosage: 100 UG, UNK
  6. FASLODEX [Concomitant]
  7. INSULIN [Concomitant]
  8. ZYRTEC [Concomitant]
  9. ZANTAC [Concomitant]
  10. LEXAPRO [Concomitant]
  11. CARDIZEM [Concomitant]
  12. NOVOLOG [Concomitant]
  13. LEVEMIR [Concomitant]
  14. ACCUPRIL [Concomitant]
  15. MUCINEX [Concomitant]
  16. RESTORIL [Concomitant]
  17. CIPRO [Concomitant]
  18. FLUCONAZOLE [Concomitant]
  19. LORTAB [Concomitant]
  20. MEGESTROL [Concomitant]
  21. MELOXICAM [Concomitant]
  22. METFORMIN [Concomitant]
  23. CHLORZOXAZONE [Concomitant]
  24. CHEMOTHERAPEUTICS [Concomitant]
     Dates: start: 20080512
  25. AMBIEN [Concomitant]
     Dosage: 1 DF, QHS
  26. LASIX [Concomitant]
     Dosage: 1 DF, QD
  27. CINNAMON [Concomitant]
     Dosage: 1 DF, BID
  28. GLUCOPHAGE [Concomitant]
     Dosage: 1 DF, BID
  29. KLOR-CON [Concomitant]
  30. METOLAZONE [Concomitant]
     Dosage: 1 DF, QOD
  31. DEMADEX [Concomitant]
     Dosage: 20 MG
  32. CYMBALTA [Concomitant]
     Dosage: 60 MG BID
  33. MAGNESIUM OXIDE [Concomitant]
     Dosage: 400 MG, QD
  34. NYSTATIN [Concomitant]
     Dosage: 5 ML, QID
  35. NORCO [Concomitant]
  36. ADENOSINE [Concomitant]
  37. CARDIOLITE [Concomitant]
  38. PRANDIN [Concomitant]
     Dosage: 2 MG, TID
  39. NOLVADEX [Concomitant]
  40. AVANDIA [Concomitant]
  41. ECOTRIN [Concomitant]
  42. DARVOCET-N [Concomitant]
  43. COVERA-HS [Concomitant]
  44. VITAMIN C [Concomitant]
  45. ANCEF [Concomitant]
  46. MORPHINE [Concomitant]
  47. KEFLEX [Concomitant]
  48. PROAIR [Concomitant]
  49. DIOVAN [Concomitant]
  50. PARAFON FORTE [Concomitant]
  51. DIFLUCAN [Concomitant]
     Dosage: 150 MG, UNK
  52. LANTUS [Concomitant]
     Dosage: 40 MG, UNK
  53. OXYCONTIN [Concomitant]
  54. DILAUDID [Concomitant]
  55. LEVAQUIN [Concomitant]
  56. OXYCODONE [Concomitant]
     Dosage: 40 MG, BID
  57. LOVENOX [Concomitant]
     Dosage: 40 MG, QD
  58. METFORMIN HYDROCHLORIDE [Concomitant]
     Dosage: 1000 MG, BID
  59. COLACE [Concomitant]
     Dosage: 100 MG, BID
  60. PERCOCET [Concomitant]
  61. ACUPRIL [Concomitant]
     Dosage: 20 MG, QD
  62. LACTULOSE [Concomitant]
  63. MEGACE [Concomitant]
     Dosage: 40 MG, UNK
  64. CRESTOR [Concomitant]
     Dosage: 10 MG, UNK
  65. CETIRIZINE [Concomitant]
     Indication: HYPERSENSITIVITY
     Dosage: 10 MG, UNK
  66. ALEVE [Concomitant]
     Indication: DIABETES MELLITUS
     Dosage: 500 MG, UNK
  67. MOBIC [Concomitant]
     Dosage: 7.5 MG, BID
  68. AROMASIN [Concomitant]
     Dosage: 25 MG, UNK
  69. ALLEGRA [Concomitant]
     Dosage: 180 MG, UNK
  70. HORMONES NOS [Concomitant]
  71. LIQUIBID [Concomitant]
     Dosage: 600 MG, BID
  72. TUSSIN [Concomitant]
  73. AMARYL [Concomitant]
     Dosage: 14 MG, BID
  74. VERSED [Concomitant]
     Dosage: 4 MG, UNK
  75. DEMEROL [Concomitant]
     Dosage: 62.5 MG, UNK
  76. AMPICILLIN [Concomitant]
     Dosage: 100 MG, UNK
     Route: 042
  77. GENTAMYCIN [Concomitant]
     Dosage: 80 MG, UNK
     Route: 042
  78. DEXTROMETHORPHAN [Concomitant]
  79. GABAPENTIN [Concomitant]
     Dosage: 100 MG, UNK
  80. ACIDOPHILUS ^ZYMA^ [Concomitant]
     Route: 048
  81. NEXIUM [Concomitant]
     Dosage: 40 MG, UNK

REACTIONS (157)
  - Oedema [Unknown]
  - Osteonecrosis of jaw [Unknown]
  - Injury [Unknown]
  - Disability [Unknown]
  - Pain [Unknown]
  - Anxiety [Unknown]
  - Anhedonia [Unknown]
  - Bone loss [Unknown]
  - Cardiac murmur [Unknown]
  - Bronchitis [Unknown]
  - Nephrolithiasis [Unknown]
  - Arthritis [Unknown]
  - Metastases to bone [Unknown]
  - Bone lesion [Unknown]
  - Osteitis [Unknown]
  - Rubella [Unknown]
  - Mumps [Unknown]
  - Scarlet fever [Unknown]
  - Pneumonia [Unknown]
  - Kidney infection [Unknown]
  - Back pain [Unknown]
  - Asthma [Unknown]
  - Seasonal allergy [Unknown]
  - Urticaria [Unknown]
  - Skin disorder [Unknown]
  - Cholelithiasis [Unknown]
  - Rectal polyp [Unknown]
  - Haemorrhoids [Unknown]
  - Goitre [Unknown]
  - Osteoporosis [Unknown]
  - Vitamin D decreased [Unknown]
  - Chronic sinusitis [Unknown]
  - Hypokalaemia [Unknown]
  - Constipation [Unknown]
  - Gastrooesophageal reflux disease [Unknown]
  - Abdominal pain [Unknown]
  - Pathological fracture [Unknown]
  - Pain in extremity [Unknown]
  - Local swelling [Unknown]
  - Rash [Unknown]
  - Dyspnoea exertional [Unknown]
  - Scoliosis [Unknown]
  - Oral infection [Unknown]
  - Swelling face [Unknown]
  - Lymphoedema [Unknown]
  - Cardiomegaly [Unknown]
  - Arteriosclerosis coronary artery [Unknown]
  - Gingival pain [Unknown]
  - Gingival erythema [Unknown]
  - Carpal tunnel syndrome [Unknown]
  - Peripheral sensory neuropathy [Unknown]
  - Diverticulum intestinal [Unknown]
  - Tendonitis [Unknown]
  - Pollakiuria [Unknown]
  - Contusion [Unknown]
  - Fall [Unknown]
  - Head injury [Unknown]
  - Neck injury [Unknown]
  - Osteoarthritis [Unknown]
  - Acetabulum fracture [Unknown]
  - Joint swelling [Unknown]
  - Hepatic steatosis [Unknown]
  - Spinal osteoarthritis [Unknown]
  - Sleep apnoea syndrome [Unknown]
  - Cardiac failure congestive [Unknown]
  - Lung neoplasm malignant [Unknown]
  - Chronic obstructive pulmonary disease [Unknown]
  - Fluid overload [Unknown]
  - Transient ischaemic attack [Unknown]
  - Hypermetabolism [Unknown]
  - Intervertebral disc degeneration [Unknown]
  - Facet joint syndrome [Unknown]
  - Ligament injury [Unknown]
  - Candida infection [Unknown]
  - Renal failure chronic [Unknown]
  - Deep vein thrombosis [Unknown]
  - Haematoma [Unknown]
  - Depression [Unknown]
  - Neoplasm progression [Unknown]
  - Malignant neoplasm progression [Unknown]
  - Nodule [Unknown]
  - Arrhythmia [Unknown]
  - Atrial fibrillation [Unknown]
  - Hyperlipidaemia [Unknown]
  - Tenosynovitis stenosans [Unknown]
  - Mitral valve prolapse [Unknown]
  - Device malfunction [Unknown]
  - Pain in jaw [Unknown]
  - Toothache [Unknown]
  - Tooth infection [Unknown]
  - Intervertebral disc space narrowing [Unknown]
  - Vision blurred [Unknown]
  - Lymphoma [Unknown]
  - Gait disturbance [Unknown]
  - Retinal tear [Unknown]
  - Type 1 diabetes mellitus [Unknown]
  - Cataract [Unknown]
  - Fungal infection [Unknown]
  - Fluid retention [Unknown]
  - Hypervolaemia [Unknown]
  - Urinary tract infection [Unknown]
  - Atrioventricular block first degree [Unknown]
  - Ventricular extrasystoles [Unknown]
  - Supraventricular extrasystoles [Unknown]
  - Skin lesion [Unknown]
  - Actinic keratosis [Unknown]
  - Tinea infection [Unknown]
  - Gout [Unknown]
  - Dry mouth [Unknown]
  - Intertrigo [Unknown]
  - Vulvovaginal candidiasis [Unknown]
  - Memory impairment [Unknown]
  - Tongue ulceration [Unknown]
  - Seborrhoeic keratosis [Unknown]
  - Dehydration [Unknown]
  - Cerebrovascular accident [Unknown]
  - Arthralgia [Unknown]
  - Abdominal distension [Unknown]
  - Swelling [Unknown]
  - Chest discomfort [Unknown]
  - Gastric ulcer [Unknown]
  - Panic attack [Unknown]
  - Dyspnoea [Unknown]
  - Balance disorder [Unknown]
  - Lacrimation increased [Unknown]
  - Pulmonary oedema [Unknown]
  - Hyperparathyroidism secondary [Unknown]
  - Hypertensive nephropathy [Unknown]
  - Gastrointestinal haemorrhage [Unknown]
  - Pruritus [Unknown]
  - Myalgia [Unknown]
  - Nausea [Unknown]
  - Dysphonia [Unknown]
  - Oral herpes [Unknown]
  - Asthenia [Unknown]
  - Skin mass [Unknown]
  - Tooth loss [Unknown]
  - Impaired healing [Unknown]
  - Decubitus ulcer [Unknown]
  - Urinary incontinence [Unknown]
  - Tendon disorder [Unknown]
  - Muscular weakness [Unknown]
  - Dyspepsia [Unknown]
  - Oedema peripheral [Unknown]
  - Lethargy [Unknown]
  - Malaise [Unknown]
  - Cough [Unknown]
  - Fatigue [Unknown]
  - Metastases to spine [Unknown]
  - Mitral valve incompetence [Unknown]
  - Tricuspid valve incompetence [Unknown]
  - Joint range of motion decreased [Unknown]
  - Musculoskeletal pain [Unknown]
  - Stasis dermatitis [Unknown]
  - Osteolysis [Unknown]
  - Osteopenia [Unknown]
  - Exostosis [Unknown]
